FAERS Safety Report 17809423 (Version 1)
Quarter: 2020Q2

REPORT INFORMATION
  Report Type: Spontaneous
  Country: CN (occurrence: CN)
  Receive Date: 20200520
  Receipt Date: 20200520
  Transmission Date: 20200714
  Serious: Yes (Other)
  Sender: FDA-Public Use
  Company Number: CN-BAYER-2020-082493

PATIENT
  Age: 21 Year
  Sex: Female
  Weight: 64.5 kg

DRUGS (1)
  1. YAZ [Suspect]
     Active Substance: DROSPIRENONE\ETHINYL ESTRADIOL
     Indication: CONTRACEPTION
     Dosage: 1 DF, QD
     Route: 048
     Dates: start: 20200330, end: 20200416

REACTIONS (2)
  - Post procedural haemorrhage [Recovered/Resolved]
  - Metrorrhagia [None]

NARRATIVE: CASE EVENT DATE: 20200330
